FAERS Safety Report 5181148-3 (Version None)
Quarter: 2006Q4

REPORT INFORMATION
  Report Type: 
  Country: None (occurrence: None)
  Receive Date: 20061220
  Receipt Date: 20061213
  Transmission Date: 20070319
  Serious: Yes (Hospitalization)
  Sender: FDA-Public Use
  Company Number: FR-JNJFOC-20061106391

PATIENT
  Age: 37 Year
  Sex: Female

DRUGS (2)
  1. ACETAMINOPHEN [Suspect]
  2. ACETAMINOPHEN [Suspect]
     Indication: PELVIC PAIN
     Dosage: 2 GRAMS PER DAY CHRONICALLY, THEN 5 GRAMS/DAY FOR 3 WEEKS

REACTIONS (3)
  - CYTOLYTIC HEPATITIS [None]
  - HEPATIC STEATOSIS [None]
  - INTENTIONAL OVERDOSE [None]
